FAERS Safety Report 23123631 (Version 1)
Quarter: 2023Q4

REPORT INFORMATION
  Report Type: Report from Study
  Country: CN (occurrence: None)
  Receive Date: 20231030
  Receipt Date: 20231030
  Transmission Date: 20240110
  Serious: Yes (Hospitalization)
  Sender: FDA-Public Use
  Company Number: CN-ROCHE-2705488

PATIENT
  Age: 54 Year
  Sex: Female
  Weight: 62 kg

DRUGS (18)
  1. BEVACIZUMAB [Suspect]
     Active Substance: BEVACIZUMAB
     Indication: Ovarian epithelial cancer
     Route: 042
     Dates: start: 20191204
  2. BEVACIZUMAB [Suspect]
     Active Substance: BEVACIZUMAB
     Dosage: DATE OF MOST RECENT DOSE OF BLINDED BEVACIZUMAB PRIOR TO SAE ONSET: 09/OCT/2020
     Route: 042
  3. PACLITAXEL [Suspect]
     Active Substance: PACLITAXEL
     Indication: Ovarian epithelial cancer
     Route: 042
     Dates: start: 20191114
  4. PACLITAXEL [Suspect]
     Active Substance: PACLITAXEL
     Dosage: DATE OF MOST RECENT DOSE (272.04 MG) OF PACLITAXEL PRIOR TO SAE ONSET: 11/MAY/2020
     Route: 042
  5. CARBOPLATIN [Suspect]
     Active Substance: CARBOPLATIN
     Indication: Ovarian epithelial cancer
     Route: 042
     Dates: start: 20191114
  6. CARBOPLATIN [Suspect]
     Active Substance: CARBOPLATIN
     Dosage: DATE OF MOST RECENT DOSE (678.21 MG) OF CARBOPLATIN PRIOR TO SAE ONSET: 11/MAR/2020
     Route: 042
  7. POTASSIUM CHLORIDE [Concomitant]
     Active Substance: POTASSIUM CHLORIDE
     Dates: start: 20201029, end: 20201103
  8. ALANYL GLUTAMINE [Concomitant]
     Active Substance: ALANYL GLUTAMINE
     Dates: start: 20201029, end: 20201103
  9. VITAMINS [Concomitant]
     Active Substance: VITAMINS
     Dates: start: 20201029, end: 20201103
  10. VITAMINS [Concomitant]
     Active Substance: VITAMINS
     Dates: start: 20201030, end: 20201104
  11. INSULIN NOS [Concomitant]
     Active Substance: INSULIN NOS
     Dosage: 20 U
     Dates: start: 20201029, end: 20201103
  12. INSULIN NOS [Concomitant]
     Active Substance: INSULIN NOS
     Dates: start: 20201030, end: 20201104
  13. OMEPRAZOLE SODIUM [Concomitant]
     Active Substance: OMEPRAZOLE SODIUM
     Dates: start: 20201030, end: 20201104
  14. SODIUM POTASSIUM MAGNESIUM CALCIUM AND GLUCOSE [Concomitant]
     Dates: start: 20201030, end: 20201104
  15. SODIUM CHLORIDE [Concomitant]
     Active Substance: SODIUM CHLORIDE
     Dates: start: 20201030, end: 20201104
  16. HEPARIN SODIUM [Concomitant]
     Active Substance: HEPARIN SODIUM
     Dates: start: 20201029, end: 20201029
  17. LIDOCAINE HYDROCHLORIDE [Concomitant]
     Active Substance: DEXTROSE MONOHYDRATE\EPINEPHRINE\EPINEPHRINE BITARTRATE\LIDOCAINE\LIDOCAINE HYDROCHLORIDE\LIDOCAINE
     Dates: start: 20201029, end: 20201029
  18. SOMATOSTATIN [Concomitant]
     Active Substance: SOMATOSTATIN
     Dates: start: 20201029, end: 20201029

REACTIONS (1)
  - Ileus [Recovered/Resolved]

NARRATIVE: CASE EVENT DATE: 20201029
